FAERS Safety Report 9782927 (Version 1)
Quarter: 2013Q4

REPORT INFORMATION
  Report Type: Spontaneous
  Country: US (occurrence: US)
  Receive Date: 20131226
  Receipt Date: 20131226
  Transmission Date: 20140711
  Serious: No
  Sender: FDA-Public Use
  Company Number: US-ABBVIE-13P-163-1155389-00

PATIENT
  Sex: Male
  Weight: 71.73 kg

DRUGS (9)
  1. LUPRON DEPOT [Suspect]
     Indication: PROSTATE CANCER
     Dosage: ONE INJECTION
     Route: 030
     Dates: start: 2005, end: 2005
  2. LUPRON DEPOT [Suspect]
     Route: 030
     Dates: start: 201306
  3. LUPRON DEPOT [Suspect]
     Indication: PROSTATE CANCER
     Route: 030
     Dates: start: 2005, end: 2005
  4. EFFEXOR [Concomitant]
     Indication: HOT FLUSH
     Dates: start: 2005, end: 2005
  5. EFFEXOR [Concomitant]
     Dates: start: 201306
  6. CASODEX [Concomitant]
     Indication: HOT FLUSH
  7. AMLODIPINE [Concomitant]
     Indication: HYPERTENSION
  8. LOPRESSOR [Concomitant]
     Indication: HYPERTENSION
  9. CELEBREX [Concomitant]
     Indication: POLYMYALGIA RHEUMATICA
     Dates: start: 2013

REACTIONS (3)
  - Polymyalgia rheumatica [Not Recovered/Not Resolved]
  - Hot flush [Not Recovered/Not Resolved]
  - Chills [Not Recovered/Not Resolved]
